APPROVED DRUG PRODUCT: PITAVASTATIN CALCIUM
Active Ingredient: PITAVASTATIN CALCIUM
Strength: EQ 2MG BASE
Dosage Form/Route: TABLET;ORAL
Application: A206015 | Product #002 | TE Code: AB
Applicant: AUROBINDO PHARMA LTD
Approved: Dec 20, 2016 | RLD: No | RS: No | Type: RX